FAERS Safety Report 5076724-2 (Version None)
Quarter: 2006Q3

REPORT INFORMATION
  Report Type: 
  Country: None (occurrence: None)
  Receive Date: 20060725
  Receipt Date: 20060526
  Transmission Date: 20061208
  Serious: Yes (Hospitalization)
  Sender: FDA-Public Use
  Company Number: 200610040BWH

PATIENT
  Age: 77 Year
  Sex: Male
  Weight: 79.3795 kg

DRUGS (9)
  1. NEXAVAR [Suspect]
     Indication: BRAIN NEOPLASM
     Dosage: SEE IMAGE
     Route: 048
     Dates: start: 20050501, end: 20051101
  2. NEXAVAR [Suspect]
     Indication: METASTATIC RENAL CELL CARCINOMA
     Dosage: SEE IMAGE
     Route: 048
     Dates: start: 20050501, end: 20051101
  3. NEXAVAR [Suspect]
     Indication: BRAIN NEOPLASM
     Dosage: SEE IMAGE
     Route: 048
     Dates: start: 20051101
  4. NEXAVAR [Suspect]
     Indication: METASTATIC RENAL CELL CARCINOMA
     Dosage: SEE IMAGE
     Route: 048
     Dates: start: 20051101
  5. NEXAVAR [Suspect]
     Indication: BRAIN NEOPLASM
     Dosage: SEE IMAGE
     Route: 048
     Dates: start: 20051101
  6. NEXAVAR [Suspect]
     Indication: METASTATIC RENAL CELL CARCINOMA
     Dosage: SEE IMAGE
     Route: 048
     Dates: start: 20051101
  7. ASPIRIN [Concomitant]
  8. PRAVACHOL [Concomitant]
  9. LOPRESSOR [Concomitant]

REACTIONS (8)
  - DIARRHOEA [None]
  - MICTURITION URGENCY [None]
  - MUSCULOSKELETAL STIFFNESS [None]
  - NECK PAIN [None]
  - POLLAKIURIA [None]
  - PYREXIA [None]
  - STAPHYLOCOCCAL INFECTION [None]
  - WEIGHT DECREASED [None]
